FAERS Safety Report 7750340-3 (Version None)
Quarter: 2011Q3

REPORT INFORMATION
  Report Type: 
  Country: None (occurrence: None)
  Receive Date: 20110914
  Receipt Date: 20110905
  Transmission Date: 20111222
  Serious: Yes (Hospitalization)
  Sender: FDA-Public Use
  Company Number: JP-NOVOPROD-333642

PATIENT

DRUGS (6)
  1. ASPIRIN [Concomitant]
     Indication: MYOCARDIAL ISCHAEMIA
     Dosage: 100 MG, QD
     Route: 048
  2. AMLODIPINE [Concomitant]
     Indication: HYPERTENSION
     Dosage: 1-2 TAB, QD
     Route: 048
     Dates: start: 20110715, end: 20110727
  3. NOVORAPID CHU FLEXPEN [Suspect]
     Indication: TYPE 2 DIABETES MELLITUS
     Dosage: (2-2-2-0)
     Route: 065
     Dates: start: 20110721
  4. DIOVAN [Concomitant]
     Indication: HYPERTENSION
     Dosage: 80 MG, QD
     Route: 048
  5. NOVORAPID CHU FLEXPEN [Suspect]
     Dosage: 6-2-5-0
     Route: 065
     Dates: start: 20110726, end: 20110727
  6. LANTUS [Concomitant]
     Indication: TYPE 2 DIABETES MELLITUS
     Dosage: 5 U, QD, (0-0-0-3)
     Route: 058
     Dates: start: 20110721, end: 20110726

REACTIONS (3)
  - LIVER DISORDER [None]
  - ALANINE AMINOTRANSFERASE INCREASED [None]
  - ASPARTATE AMINOTRANSFERASE INCREASED [None]
